FAERS Safety Report 6884537-1 (Version None)
Quarter: 2010Q3

REPORT INFORMATION
  Report Type: 
  Country: None (occurrence: None)
  Receive Date: 20100729
  Receipt Date: 20070712
  Transmission Date: 20110219
  Serious: Yes (Hospitalization)
  Sender: FDA-Public Use
  Company Number: US-PFIZER INC-2007058400

PATIENT
  Sex: Male
  Weight: 65.8 kg

DRUGS (3)
  1. CELEBREX [Suspect]
     Indication: BACK PAIN
     Dosage: 1-2 DAILY
     Dates: end: 20040101
  2. CODEINE [Concomitant]
  3. ROFECOXIB [Concomitant]

REACTIONS (1)
  - MYOCARDIAL INFARCTION [None]
